FAERS Safety Report 15768317 (Version 4)
Quarter: 2019Q1

REPORT INFORMATION
  Report Type: Report from Study
  Country: CO (occurrence: CO)
  Receive Date: 20181227
  Receipt Date: 20190116
  Transmission Date: 20190417
  Serious: Yes (Other)
  Sender: FDA-Public Use
  Company Number: PHHY2018CO196133

PATIENT
  Age: 54 Year
  Sex: Female
  Weight: 58 kg

DRUGS (5)
  1. LEVOTHYROXINE. [Concomitant]
     Active Substance: LEVOTHYROXINE
     Indication: HYPOTHYROIDISM
     Dosage: 100 MG, QD
     Route: 048
  2. AMIODARONE [Concomitant]
     Active Substance: AMIODARONE
     Indication: CARDIAC FAILURE
     Dosage: 200 MG, QD
     Route: 048
  3. CARVEDILOL. [Concomitant]
     Active Substance: CARVEDILOL
     Indication: CARDIAC FAILURE
     Dosage: 25 MG, Q12H
     Route: 048
  4. ENTRESTO [Suspect]
     Active Substance: SACUBITRIL\VALSARTAN
     Indication: CARDIAC FAILURE
     Dosage: 50 MG, Q12H
     Route: 048
     Dates: start: 20181128, end: 20181220
  5. SPIRONOLACTONE. [Concomitant]
     Active Substance: SPIRONOLACTONE
     Indication: CARDIAC FAILURE
     Dosage: 25 MG, QD
     Route: 048

REACTIONS (7)
  - Dizziness [Unknown]
  - Headache [Recovered/Resolved]
  - Hypotension [Not Recovered/Not Resolved]
  - Tachycardia [Not Recovered/Not Resolved]
  - Vision blurred [Unknown]
  - Feeling abnormal [Unknown]
  - Photopsia [Unknown]

NARRATIVE: CASE EVENT DATE: 201812
